FAERS Safety Report 9919459 (Version 2)
Quarter: 2014Q1

REPORT INFORMATION
  Report Type: Spontaneous
  Country: US (occurrence: US)
  Receive Date: 20140224
  Receipt Date: 20140327
  Transmission Date: 20141002
  Serious: Yes (Other)
  Sender: FDA-Public Use
  Company Number: US-PFIZER INC-2014051801

PATIENT
  Age: 34 Year
  Sex: Female
  Weight: 48.1 kg

DRUGS (6)
  1. PREMARIN [Suspect]
     Indication: HORMONE REPLACEMENT THERAPY
     Dosage: 1.25 MG, 1X/DAY
     Route: 048
  2. ATENOLOL [Concomitant]
     Indication: HYPERTENSION
     Dosage: 12.5 MG (12.5MG OF 25MG), UNK
  3. RESTORIL [Concomitant]
     Dosage: UNK
  4. TRAMADOL [Concomitant]
     Dosage: 50 MG, 2X/DAY
  5. METHOCARBAMOL [Concomitant]
     Indication: MUSCLE DISORDER
     Dosage: 500 MG, 2X/DAY
  6. KLONOPIN [Concomitant]
     Dosage: 0.5 MG, AS NEEDED (AS THREE TIMES A DAY AS NEEDED)

REACTIONS (3)
  - Myelitis transverse [Unknown]
  - Nerve injury [Unknown]
  - General physical health deterioration [Unknown]
